FAERS Safety Report 8342070-4 (Version None)
Quarter: 2012Q2

REPORT INFORMATION
  Report Type: 
  Country: None (occurrence: None)
  Receive Date: 20120507
  Receipt Date: 19870210
  Transmission Date: 20120825
  Serious: Yes (Hospitalization, Other)
  Sender: FDA-Public Use
  Company Number: US-ROCHE-870200200003

PATIENT
  Age: 15 Year
  Sex: Male

DRUGS (1)
  1. ROFERON-A [Suspect]
     Indication: CHRONIC MYELOID LEUKAEMIA
     Route: 065

REACTIONS (3)
  - FUNGAL SEPSIS [None]
  - BACTERIAL SEPSIS [None]
  - BONE MARROW FAILURE [None]
